FAERS Safety Report 8033100-8 (Version None)
Quarter: 2012Q1

REPORT INFORMATION
  Report Type: 
  Country: None (occurrence: None)
  Receive Date: 20120110
  Receipt Date: 20120110
  Transmission Date: 20120608
  Serious: Yes (Other)
  Sender: FDA-Public Use
  Company Number: None

PATIENT
  Sex: Female
  Weight: 84.821 kg

DRUGS (1)
  1. GAMMAGARD [Suspect]
     Dosage: 8090MG
     Route: 042

REACTIONS (4)
  - CHILLS [None]
  - INFUSION RELATED REACTION [None]
  - BACK PAIN [None]
  - FEELING COLD [None]
